FAERS Safety Report 5684607-X (Version None)
Quarter: 2008Q1

REPORT INFORMATION
  Report Type: 
  Country: None (occurrence: None)
  Receive Date: 20080328
  Receipt Date: 20070404
  Transmission Date: 20080703
  Serious: Yes (Hospitalization)
  Sender: FDA-Public Use
  Company Number: US-BRISTOL-MYERS SQUIBB COMPANY-13740816

PATIENT
  Sex: Female

DRUGS (2)
  1. ERBITUX [Suspect]
  2. BENADRYL [Concomitant]

REACTIONS (3)
  - DYSPNOEA [None]
  - INFUSION RELATED REACTION [None]
  - SKIN DISCOLOURATION [None]
